FAERS Safety Report 19908409 (Version 1)
Quarter: 2021Q4

REPORT INFORMATION
  Report Type: Report from Study
  Country: US (occurrence: US)
  Receive Date: 20211001
  Receipt Date: 20211001
  Transmission Date: 20220303
  Serious: Yes (Other)
  Sender: FDA-Public Use
  Company Number: 2021A752044

PATIENT
  Sex: Male

DRUGS (1)
  1. TAGRISSO [Suspect]
     Active Substance: OSIMERTINIB
     Indication: Nasal sinus cancer
     Route: 048
     Dates: start: 202003

REACTIONS (2)
  - Mass [Unknown]
  - Systemic lupus erythematosus [Unknown]
